FAERS Safety Report 7546475-0 (Version None)
Quarter: 2011Q2

REPORT INFORMATION
  Report Type: 
  Country: None (occurrence: None)
  Receive Date: 20110607
  Receipt Date: 20110523
  Transmission Date: 20111010
  Serious: Yes (Death, Other)
  Sender: FDA-Public Use
  Company Number: 2011MA006301

PATIENT
  Age: 42 Year
  Sex: Male

DRUGS (1)
  1. VENLAFAXINE HYDROCHLORIDE [Suspect]
     Dosage: 0.2 MG/L

REACTIONS (1)
  - TOXICITY TO VARIOUS AGENTS [None]
